FAERS Safety Report 9185297 (Version 3)
Quarter: 2014Q2

REPORT INFORMATION
  Report Type: Spontaneous
  Country: US (occurrence: None)
  Receive Date: 20130321
  Receipt Date: 20140530
  Transmission Date: 20141212
  Serious: Yes (Death, Hospitalization)
  Sender: FDA-Public Use
  Company Number: 1605347

PATIENT
  Age: 78 Year
  Sex: Male
  Weight: 83 kg

DRUGS (4)
  1. PENTOSTATINE [Suspect]
     Indication: CHRONIC LYMPHOCYTIC LEUKAEMIA
     Dosage: 0 MG MILLIGRAM(S), UNKNOWN, UNKNOWN
     Dates: start: 20121203
  2. CYCLOPHOSPHAMIDE [Suspect]
     Indication: CHRONIC LYMPHOCYTIC LEUKAEMIA
     Dosage: 0 MG MILLIGRAM(S), UNKNOWN, UNKNOWN
     Dates: start: 20121203
  3. RITUXIMAB [Suspect]
     Indication: CHRONIC LYMPHOCYTIC LEUKAEMIA
     Dosage: 0 MG MILLIGRAM(S), UNKNOWN, UNKNOWN
     Dates: start: 20121203
  4. ALEMTUZUMAB [Suspect]
     Indication: CHRONIC LYMPHOCYTIC LEUKAEMIA
     Dosage: 553 MG MILLIGRAM(S), UNKNOWN, UNKNOWN
     Dates: start: 20121203, end: 20130123

REACTIONS (11)
  - Neutrophil count decreased [None]
  - White blood cell count decreased [None]
  - Platelet count decreased [None]
  - Confusional state [None]
  - Asthenia [None]
  - Sepsis [None]
  - Renal failure [None]
  - Respiratory failure [None]
  - Pneumonia pseudomonal [None]
  - Fungaemia [None]
  - Encephalopathy [None]
